FAERS Safety Report 5775353-2 (Version None)
Quarter: 2008Q2

REPORT INFORMATION
  Report Type: 
  Country: None (occurrence: None)
  Receive Date: 20080617
  Receipt Date: 20080606
  Transmission Date: 20081010
  Serious: Yes (Death, Other)
  Sender: FDA-Public Use
  Company Number: US-AVENTIS-200813507US

PATIENT
  Sex: Female
  Weight: 44.5 kg

DRUGS (13)
  1. LANTUS [Suspect]
     Indication: TYPE 1 DIABETES MELLITUS
     Route: 058
  2. OPANA ER [Suspect]
     Indication: PAIN IN EXTREMITY
     Route: 048
  3. PLAVIX [Concomitant]
     Indication: THROMBOSIS PROPHYLAXIS
     Route: 048
  4. LORCET                             /00607101/ [Concomitant]
     Indication: PAIN
     Dosage: DOSE: 10 MG, ONE TABLET Q 4-6 HOURS
  5. PREVACID [Concomitant]
     Indication: GASTROOESOPHAGEAL REFLUX DISEASE
     Dosage: DOSE: 2 TABLETS OF 30 MG DAILY
     Route: 048
  6. REGLAN [Concomitant]
     Indication: IMPAIRED GASTRIC EMPTYING
  7. HYZAAR [Concomitant]
     Indication: HYPERTENSION
     Dosage: DOSE: 100/12.5, ONE TABLET DAILY
     Route: 048
  8. LYRICA [Concomitant]
     Indication: FIBROMYALGIA
     Route: 048
  9. NOVOLOG [Concomitant]
     Indication: TYPE 1 DIABETES MELLITUS
     Dosage: DOSE: 3-18 UNITS
     Route: 058
  10. ZONEGRAN [Concomitant]
     Route: 048
  11. TRILEPTAL [Concomitant]
     Indication: NEURALGIA
     Route: 048
  12. CYMBALTA [Concomitant]
     Indication: DEPRESSION
     Route: 048
  13. XANAX [Concomitant]
     Indication: ANXIETY
     Route: 048

REACTIONS (8)
  - DEATH [None]
  - DIABETES MELLITUS INADEQUATE CONTROL [None]
  - DRUG INTERACTION [None]
  - INSOMNIA [None]
  - MALAISE [None]
  - PAIN IN EXTREMITY [None]
  - RESTLESSNESS [None]
  - VOMITING [None]
